FAERS Safety Report 16535885 (Version 5)
Quarter: 2019Q4

REPORT INFORMATION
  Report Type: Report from Study
  Country: FR (occurrence: FR)
  Receive Date: 20190705
  Receipt Date: 20191111
  Transmission Date: 20200122
  Serious: Yes (Death, Hospitalization)
  Sender: FDA-Public Use
  Company Number: PHHY2018FR169105

PATIENT
  Sex: Male
  Weight: 94 kg

DRUGS (2)
  1. VOTRIENT [Suspect]
     Active Substance: PAZOPANIB HYDROCHLORIDE
     Dosage: 600 MG, QD (DAILY)
     Route: 048
     Dates: start: 20181022, end: 20181228
  2. VOTRIENT [Suspect]
     Active Substance: PAZOPANIB HYDROCHLORIDE
     Indication: RENAL CANCER METASTATIC
     Dosage: 600 MG, QD (DAILY)
     Route: 048
     Dates: start: 20180821

REACTIONS (13)
  - Weight decreased [Unknown]
  - Renal cancer metastatic [Fatal]
  - Pyrexia [Recovered/Resolved]
  - Arrhythmia [Recovered/Resolved]
  - Vomiting [Recovering/Resolving]
  - Anxiety [Recovering/Resolving]
  - Decreased appetite [Unknown]
  - Spinal pain [Not Recovered/Not Resolved]
  - Anaemia [Recovered/Resolved with Sequelae]
  - Nausea [Recovering/Resolving]
  - Malignant neoplasm progression [Fatal]
  - Neck pain [Unknown]
  - Fatigue [Unknown]

NARRATIVE: CASE EVENT DATE: 201808
